FAERS Safety Report 6848060-2 (Version None)
Quarter: 2010Q3

REPORT INFORMATION
  Report Type: 
  Country: None (occurrence: None)
  Receive Date: 20100714
  Receipt Date: 20100705
  Transmission Date: 20110219
  Serious: Yes (Other)
  Sender: FDA-Public Use
  Company Number: LEO-2010-00299

PATIENT
  Age: 54 Year
  Sex: Female

DRUGS (7)
  1. INNOHEP [Suspect]
     Indication: ANTICOAGULANT THERAPY
     Dosage: 4500 IU (4500 IU, 1 IN 1 D), SUBCUTANEOUS
     Route: 058
     Dates: start: 20100120, end: 20100125
  2. ACETAMINOPHEN [Concomitant]
  3. CHONDROSULF (CHONDROITIN SULFATE SODIUM) [Concomitant]
  4. COZAAR [Concomitant]
  5. LOVENOX [Concomitant]
  6. KETOPROFEN [Concomitant]
  7. NEXIUM [Concomitant]

REACTIONS (2)
  - DRUG INEFFECTIVE [None]
  - THROMBOPHLEBITIS [None]
